FAERS Safety Report 5745027-2 (Version None)
Quarter: 2008Q2

REPORT INFORMATION
  Report Type: 
  Country: None (occurrence: None)
  Receive Date: 20080521
  Receipt Date: 20080507
  Transmission Date: 20081010
  Serious: Yes (Other)
  Sender: FDA-Public Use
  Company Number: PHHY2008AU07390

PATIENT
  Age: 58 Year
  Sex: Male
  Weight: 105 kg

DRUGS (3)
  1. FAMVIR [Suspect]
     Indication: HERPES ZOSTER
     Dosage: 750 MG/ DAY
     Route: 065
  2. MONOPRIL [Concomitant]
     Indication: ESSENTIAL HYPERTENSION
     Dosage: 20 MG/ DAY
     Route: 048
     Dates: start: 19970302
  3. ZYLOPRIM [Concomitant]
     Indication: GOUT
     Dosage: 300 MG/ DAY
     Route: 065
     Dates: start: 19900101

REACTIONS (2)
  - COMA [None]
  - CONFUSIONAL STATE [None]
